FAERS Safety Report 17968204 (Version 1)
Quarter: 2020Q3

REPORT INFORMATION
  Report Type: Spontaneous
  Country: FR (occurrence: FR)
  Receive Date: 20200701
  Receipt Date: 20200701
  Transmission Date: 20201103
  Serious: Yes (Hospitalization, Other)
  Sender: FDA-Public Use
  Company Number: FR-PFIZER INC-2020251210

PATIENT
  Age: 55 Year
  Sex: Female
  Weight: 62 kg

DRUGS (1)
  1. PACLITAXEL. [Suspect]
     Active Substance: PACLITAXEL
     Indication: BREAST CANCER FEMALE
     Dosage: 144 MG
     Route: 042
     Dates: start: 20200206, end: 20200220

REACTIONS (2)
  - Anaphylactic reaction [Recovered/Resolved]
  - Product supply issue [Recovered/Resolved]

NARRATIVE: CASE EVENT DATE: 202002
